FAERS Safety Report 7912465-9 (Version None)
Quarter: 2011Q4

REPORT INFORMATION
  Report Type: 
  Country: None (occurrence: None)
  Receive Date: 20111114
  Receipt Date: 20111108
  Transmission Date: 20120403
  Serious: No
  Sender: FDA-Public Use
  Company Number: US-PFIZER INC-2011274990

PATIENT
  Sex: Female
  Weight: 70.295 kg

DRUGS (3)
  1. GENOTROPIN [Suspect]
     Indication: HYPOPITUITARISM
     Dosage: UNK
     Dates: start: 20090501
  2. WARFARIN SODIUM [Interacting]
     Indication: CEREBRAL THROMBOSIS
     Dosage: UNK
  3. SYNTHROID [Interacting]
     Indication: THYROID DISORDER
     Dosage: UNK
     Route: 048

REACTIONS (2)
  - DRUG INTERACTION [None]
  - BLOOD TEST ABNORMAL [None]
